FAERS Safety Report 19112686 (Version 1)
Quarter: 2021Q2

REPORT INFORMATION
  Report Type: Spontaneous
  Country: US (occurrence: US)
  Receive Date: 20210409
  Receipt Date: 20210409
  Transmission Date: 20210717
  Serious: No
  Sender: FDA-Public Use
  Company Number: US-ALLERGAN-2038527US

PATIENT
  Sex: Female

DRUGS (2)
  1. ALLERGY MEDICATION [Concomitant]
     Active Substance: DIPHENHYDRAMINE HYDROCHLORIDE
     Indication: HYPERSENSITIVITY
  2. LILETTA [Suspect]
     Active Substance: LEVONORGESTREL
     Indication: INTERMENSTRUAL BLEEDING
     Dosage: 52 MG, SINGLE
     Route: 015
     Dates: start: 20200928, end: 20200928

REACTIONS (1)
  - Off label use [Unknown]
